FAERS Safety Report 24529512 (Version 1)
Quarter: 2024Q4

REPORT INFORMATION
  Report Type: Spontaneous
  Country: US (occurrence: None)
  Receive Date: 20241021
  Receipt Date: 20241021
  Transmission Date: 20250115
  Serious: Yes (Hospitalization)
  Sender: Public
  Company Number: None

PATIENT
  Sex: Female

DRUGS (7)
  1. LENALIDOMIDE [Suspect]
     Active Substance: LENALIDOMIDE
     Indication: Plasma cell myeloma in remission
     Route: 048
     Dates: start: 20230224
  2. ACYCLOVIR [Concomitant]
     Active Substance: ACYCLOVIR
  3. CALCIUM/D TAB 500MG [Concomitant]
  4. ELIQUIS [Concomitant]
     Active Substance: APIXABAN
  5. POTASSIUM POW CHLORIDE [Concomitant]
  6. VITAMIN B-12TAB 500MCG [Concomitant]
  7. VITAMIN D-1000 [Concomitant]

REACTIONS (2)
  - Stress [None]
  - Therapy interrupted [None]
